FAERS Safety Report 5104366-9 (Version None)
Quarter: 2006Q3

REPORT INFORMATION
  Report Type: 
  Country: None (occurrence: None)
  Receive Date: 20060914
  Receipt Date: 20060822
  Transmission Date: 20061208
  Serious: Yes (Life-Threatening, Hospitalization)
  Sender: FDA-Public Use
  Company Number: DE-JNJFOC-20060805186

PATIENT
  Sex: Male
  Weight: 94 kg

DRUGS (14)
  1. TOPAMAX [Suspect]
     Indication: SIMPLE PARTIAL SEIZURES
     Route: 048
  2. PREDNI H [Concomitant]
     Route: 048
  3. LAMICTAL [Concomitant]
     Route: 048
  4. SIMVABETA [Concomitant]
     Route: 048
  5. THEOPHYLLINE [Concomitant]
     Route: 048
  6. VERAHEXAL [Concomitant]
     Route: 048
  7. CALCIUM D3 [Concomitant]
     Dosage: 2 DOSES = 2 TABLETS
  8. PANTOZOL [Concomitant]
     Route: 048
  9. TORSEMIDE [Concomitant]
     Route: 048
  10. PULMAX [Concomitant]
  11. SALBULAIR AUTOHALER [Concomitant]
     Dosage: AS NEEDED
  12. FORMOTEROL [Concomitant]
  13. ATROVENT [Concomitant]
     Dosage: 250UG/2ML
  14. ALENDRONATE SODIUM [Concomitant]
     Route: 048

REACTIONS (4)
  - ASTHMA [None]
  - CHRONIC OBSTRUCTIVE PULMONARY DISEASE [None]
  - CONDITION AGGRAVATED [None]
  - STATUS ASTHMATICUS [None]
